FAERS Safety Report 10044967 (Version 1)
Quarter: 2014Q1

REPORT INFORMATION
  Report Type: Spontaneous
  Country: US (occurrence: None)
  Receive Date: 20140306
  Receipt Date: 20140306
  Transmission Date: 20141002
  Serious: Yes (Hospitalization)
  Sender: FDA-Public Use
  Company Number: 163-21880-13053153

PATIENT
  Age: 60 Year
  Sex: Female
  Weight: 97.8 kg

DRUGS (4)
  1. REVLIMID (LENALIDOMIDE) (CAPSULES) [Suspect]
     Indication: PLASMA CELL MYELOMA RECURRENT
     Route: 048
     Dates: start: 20121126, end: 2013
  2. MLN9708/PLACEBO [Suspect]
     Indication: PLASMA CELL MYELOMA RECURRENT
     Route: 048
     Dates: start: 20121126, end: 20130107
  3. DEXAMETHASONE (DEXAMETHASONE) [Concomitant]
  4. RED BLOOD CELLS (RED BLOOD CELLS) [Concomitant]

REACTIONS (1)
  - Renal failure acute [None]
